FAERS Safety Report 11248568 (Version 1)
Quarter: 2015Q3

REPORT INFORMATION
  Report Type: Spontaneous
  Country: US (occurrence: US)
  Receive Date: 20150708
  Receipt Date: 20150708
  Transmission Date: 20151125
  Serious: No
  Sender: FDA-Public Use
  Company Number: US-ELI_LILLY_AND_COMPANY-US200912005641

PATIENT
  Age: 53 Year
  Sex: Female

DRUGS (1)
  1. PROZAC [Suspect]
     Active Substance: FLUOXETINE HYDROCHLORIDE
     Dosage: UNK, UNKNOWN
     Route: 065

REACTIONS (10)
  - Anxiety disorder [Unknown]
  - Drug ineffective [Unknown]
  - Vision blurred [Unknown]
  - Agitation [Unknown]
  - Libido decreased [Unknown]
  - Weight increased [Unknown]
  - Anxiety [Unknown]
  - Nervousness [Unknown]
  - Asthenia [Unknown]
  - Orgasm abnormal [Unknown]
